FAERS Safety Report 21226821 (Version 1)
Quarter: 2022Q3

REPORT INFORMATION
  Report Type: Spontaneous
  Country: CN (occurrence: CN)
  Receive Date: 20220818
  Receipt Date: 20220818
  Transmission Date: 20221027
  Serious: Yes (Life-Threatening, Other)
  Sender: FDA-Public Use
  Company Number: None

PATIENT
  Age: 41 Year
  Sex: Male
  Weight: 57 kg

DRUGS (6)
  1. MANNITOL [Suspect]
     Active Substance: MANNITOL
     Indication: Diuretic therapy
     Dosage: 250ML ONCE DAILY
     Route: 041
     Dates: start: 20220626, end: 20220801
  2. MANNITOL [Suspect]
     Active Substance: MANNITOL
     Indication: Swelling
  3. SODIUM CHLORIDE [Suspect]
     Active Substance: SODIUM CHLORIDE
     Indication: Medication dilution
     Dosage: 10ML, TWICE DAILY
     Route: 042
     Dates: start: 20220626, end: 20220626
  4. KETOROLAC TROMETHAMINE [Suspect]
     Active Substance: KETOROLAC TROMETHAMINE
     Indication: Analgesic therapy
     Dosage: 30MG TWICE DAILY
     Route: 042
     Dates: start: 20220626, end: 20220626
  5. EPINEPHRINE [Suspect]
     Active Substance: EPINEPHRINE
     Indication: Anaphylactic shock
     Dosage: 1 MG
     Route: 065
     Dates: start: 202206
  6. DEXAMETHASONE [Suspect]
     Active Substance: DEXAMETHASONE
     Indication: Anaphylactic shock
     Dosage: 5MG
     Route: 042
     Dates: start: 202206

REACTIONS (10)
  - Anaphylactic shock [Recovering/Resolving]
  - Conjunctival hyperaemia [Recovering/Resolving]
  - Dyspnoea [Recovering/Resolving]
  - Heart rate increased [Recovering/Resolving]
  - Blood pressure decreased [Recovering/Resolving]
  - Confusional state [Recovering/Resolving]
  - Rash [Recovering/Resolving]
  - Discomfort [Unknown]
  - Headache [Unknown]
  - Dizziness [Unknown]

NARRATIVE: CASE EVENT DATE: 20220626
